FAERS Safety Report 16675484 (Version 2)
Quarter: 2019Q4

REPORT INFORMATION
  Report Type: Spontaneous
  Country: US (occurrence: US)
  Receive Date: 20190806
  Receipt Date: 20191001
  Transmission Date: 20200122
  Serious: Yes (Hospitalization)
  Sender: FDA-Public Use
  Company Number: PHHY2019US179530

PATIENT
  Age: 9 Year
  Sex: Male

DRUGS (1)
  1. DEFERASIROX. [Suspect]
     Active Substance: DEFERASIROX
     Indication: THALASSAEMIA BETA
     Dosage: UNK
     Route: 065

REACTIONS (16)
  - Pyrexia [Recovering/Resolving]
  - Cough [Recovering/Resolving]
  - Diarrhoea [Recovering/Resolving]
  - Pneumonia [Recovering/Resolving]
  - Cardiomegaly [Unknown]
  - Yersinia infection [Recovered/Resolved]
  - Malaise [Recovering/Resolving]
  - Blood iron increased [Unknown]
  - Lethargy [Recovering/Resolving]
  - Asplenia [Recovering/Resolving]
  - Gastroenteritis viral [Recovering/Resolving]
  - Yersinia sepsis [Recovering/Resolving]
  - Tachycardia [Unknown]
  - Tachypnoea [Unknown]
  - Hypotension [Unknown]
  - Mental status changes [Unknown]
